FAERS Safety Report 5464426-X (Version None)
Quarter: 2007Q3

REPORT INFORMATION
  Report Type: 
  Country: None (occurrence: None)
  Receive Date: 20070921
  Receipt Date: 20070906
  Transmission Date: 20080115
  Serious: Yes (Hospitalization, Other)
  Sender: FDA-Public Use
  Company Number: US-JNJFOC-20061203565

PATIENT
  Sex: Female
  Weight: 64.41 kg

DRUGS (2)
  1. ORTHO EVRA [Suspect]
     Indication: CONTRACEPTION
     Route: 062
  2. FERROUS SULFATE TAB [Concomitant]
     Indication: ANAEMIA
     Route: 065

REACTIONS (5)
  - ANAEMIA [None]
  - DEEP VEIN THROMBOSIS [None]
  - MENORRHAGIA [None]
  - PULMONARY EMBOLISM [None]
  - UTERINE LEIOMYOMA [None]
